FAERS Safety Report 8466131-4 (Version None)
Quarter: 2012Q2

REPORT INFORMATION
  Report Type: 
  Country: None (occurrence: None)
  Receive Date: 20120620
  Receipt Date: 20120620
  Transmission Date: 20120825
  Serious: Yes (Hospitalization)
  Sender: FDA-Public Use
  Company Number: None

PATIENT
  Age: 64 Year
  Sex: Female
  Weight: 80.6 kg

DRUGS (1)
  1. TRIMETHOPRIM + SULFAMETHOXAZOLE [Suspect]
     Indication: RASH
     Dosage: 1 TAB BID PO  1 DOSE
     Route: 048

REACTIONS (8)
  - RASH MACULAR [None]
  - DYSPNOEA [None]
  - RASH [None]
  - FLUSHING [None]
  - CHEST PAIN [None]
  - URTICARIA [None]
  - PRURITUS [None]
  - THROAT TIGHTNESS [None]
